FAERS Safety Report 4963132-5 (Version None)
Quarter: 2006Q2

REPORT INFORMATION
  Report Type: 
  Country: None (occurrence: None)
  Receive Date: 20060405
  Receipt Date: 20060328
  Transmission Date: 20061013
  Serious: Yes (Hospitalization)
  Sender: FDA-Public Use
  Company Number: ZA-ROCHE-442364

PATIENT
  Age: 47 Year
  Sex: Male
  Weight: 67.5 kg

DRUGS (1)
  1. XELODA [Suspect]
     Dosage: DOSE EQUATES TO 2150 MG BD
     Route: 048
     Dates: start: 20060202, end: 20060212

REACTIONS (3)
  - FEBRILE NEUTROPENIA [None]
  - MUCOSAL INFLAMMATION [None]
  - PANCYTOPENIA [None]
